FAERS Safety Report 8592863 (Version 2)
Quarter: 2013Q2

REPORT INFORMATION
  Report Type: Spontaneous
  Country: US (occurrence: US)
  Receive Date: 20120604
  Receipt Date: 20130617
  Transmission Date: 20140414
  Serious: Yes (Hospitalization, Disabling)
  Sender: FDA-Public Use
  Company Number: US-ASTRAZENECA-2012SE34703

PATIENT
  Age: 37 Year
  Sex: Female
  Weight: 90.7 kg

DRUGS (34)
  1. NEXIUM [Suspect]
     Indication: GASTRIC ULCER
     Route: 048
  2. NEXIUM [Suspect]
     Indication: IRRITABLE BOWEL SYNDROME
     Route: 048
  3. NEXIUM [Suspect]
     Indication: GASTROOESOPHAGEAL REFLUX DISEASE
     Route: 048
  4. PRILOSEC [Suspect]
     Route: 048
  5. PRILOSEC OTC [Suspect]
     Route: 048
  6. FISH OIL [Concomitant]
  7. ASPIRIN [Concomitant]
  8. MULTIVITAMIN [Concomitant]
  9. FOLIC ACID [Concomitant]
  10. VITAMIN E [Concomitant]
  11. HYDROCODONE [Concomitant]
  12. FAMOTIDINE [Concomitant]
  13. ALIGN [Concomitant]
  14. CALCIUM [Concomitant]
  15. MECLIZINE [Concomitant]
  16. ACIDOPHILUS [Concomitant]
  17. DIGESTIVE ADVANTAGE DAILY PROBIOTIC [Concomitant]
     Dosage: DAILY
  18. DICYCLOMINE [Concomitant]
  19. BLACK COHOSH EXTRACT [Concomitant]
  20. CYCLOBENZAOR [Concomitant]
  21. ACETAMINOPHEN [Concomitant]
  22. COLLAGEN I FLEX [Concomitant]
  23. LORAZEPAM [Concomitant]
  24. MELOXICAM [Concomitant]
  25. AMITRIPTYLLINE [Concomitant]
  26. PRAVASTATIN [Concomitant]
  27. NAPROXEN [Concomitant]
  28. SUSENTIX [Concomitant]
  29. ACTIVA [Concomitant]
  30. METAMUSCIL [Concomitant]
  31. SEVERAL DIFFERENT LATA [Concomitant]
  32. PROTONIX [Concomitant]
  33. PREVACID [Concomitant]
  34. ACIDFLEX [Concomitant]

REACTIONS (19)
  - Genital disorder female [Unknown]
  - Cardiac disorder [Unknown]
  - Blood pressure abnormal [Unknown]
  - Dizziness [Unknown]
  - Intervertebral disc protrusion [Unknown]
  - Gastric disorder [Unknown]
  - Osteoporosis [Unknown]
  - Multiple fractures [Unknown]
  - Musculoskeletal pain [Unknown]
  - Pain in extremity [Unknown]
  - Carpal tunnel syndrome [Unknown]
  - Back disorder [Unknown]
  - Musculoskeletal discomfort [Unknown]
  - Musculoskeletal disorder [Unknown]
  - Liver disorder [Unknown]
  - Calcium deficiency [Unknown]
  - Lactose intolerance [Unknown]
  - Arthralgia [Unknown]
  - Hepatic enzyme increased [Unknown]
